FAERS Safety Report 5725673-2 (Version None)
Quarter: 2008Q2

REPORT INFORMATION
  Report Type: 
  Country: None (occurrence: None)
  Receive Date: 20080501
  Receipt Date: 20080421
  Transmission Date: 20081010
  Serious: Yes (Other)
  Sender: FDA-Public Use
  Company Number: BB-ABBOTT-08P-208-0448218-00

PATIENT
  Sex: Female

DRUGS (3)
  1. DEPAKENE [Suspect]
     Indication: CONVULSION
     Route: 048
     Dates: start: 20030801, end: 20071001
  2. CARBAMAZEPINE [Concomitant]
     Indication: CONVULSION
     Route: 048
     Dates: start: 20021101
  3. TOPIRAMATE [Concomitant]
     Indication: CONVULSION
     Route: 048
     Dates: start: 20030801

REACTIONS (2)
  - CEREBRAL ATROPHY [None]
  - LEARNING DISABILITY [None]
